FAERS Safety Report 21301108 (Version 3)
Quarter: 2025Q2

REPORT INFORMATION
  Report Type: Report from Study
  Country: DE (occurrence: DE)
  Receive Date: 20220907
  Receipt Date: 20250506
  Transmission Date: 20250716
  Serious: No
  Sender: TAKEDA
  Company Number: DE-TAKEDA-2022TUS061675

PATIENT
  Age: 88 Year
  Sex: Female

DRUGS (12)
  1. TEDUGLUTIDE [Suspect]
     Active Substance: TEDUGLUTIDE
     Indication: Short-bowel syndrome
     Dosage: 2.8 MILLIGRAM, QD
     Dates: start: 20150309, end: 20210831
  2. TEDUGLUTIDE [Suspect]
     Active Substance: TEDUGLUTIDE
     Dosage: 2.6 MILLIGRAM, QD
     Dates: start: 202108, end: 20220831
  3. TEDUGLUTIDE [Suspect]
     Active Substance: TEDUGLUTIDE
     Dosage: 2.4 MILLIGRAM, QD
     Dates: start: 20220901
  4. TEDUGLUTIDE [Suspect]
     Active Substance: TEDUGLUTIDE
  5. Unacid [Concomitant]
     Indication: Kidney infection
  6. METAMIZOLE [Concomitant]
     Active Substance: METAMIZOLE
     Indication: Pain
  7. SPIRONOLACTONE [Concomitant]
     Active Substance: SPIRONOLACTONE
     Dosage: 50 MILLIGRAM, QD
     Dates: start: 2019
  8. VITAMIN B12 [Concomitant]
     Active Substance: CYANOCOBALAMIN
     Indication: Vitamin supplementation
     Dosage: 1 MILLIGRAM, Q4WEEKS
  9. CLARITHROMYCIN [Concomitant]
     Active Substance: CLARITHROMYCIN
     Indication: Pneumonia
  10. SULBACTAM [Concomitant]
     Active Substance: SULBACTAM
     Indication: Pneumonia
  11. AMPICILLIN [Concomitant]
     Active Substance: AMPICILLIN
     Indication: Pneumonia
  12. Novalgin [Concomitant]
     Indication: Pain

REACTIONS (3)
  - Intervertebral disc compression [Not Recovered/Not Resolved]
  - Back pain [Recovered/Resolved]
  - Fall [Recovered/Resolved]

NARRATIVE: CASE EVENT DATE: 20211201
